FAERS Safety Report 4962245-1 (Version None)
Quarter: 2006Q2

REPORT INFORMATION
  Report Type: 
  Country: None (occurrence: None)
  Receive Date: 20060403
  Receipt Date: 20060403
  Transmission Date: 20061013
  Serious: Yes (Hospitalization, Other)
  Sender: FDA-Public Use
  Company Number: None

PATIENT
  Sex: Male
  Weight: 104.3273 kg

DRUGS (1)
  1. TOPAMAX [Suspect]
     Indication: CONVULSION
     Dosage: 25 MG 1 OR 2/DAY
     Dates: start: 20020401, end: 20020501

REACTIONS (3)
  - MALAISE [None]
  - NERVOUSNESS [None]
  - TREMOR [None]
